FAERS Safety Report 7403684-9 (Version None)
Quarter: 2011Q2

REPORT INFORMATION
  Report Type: 
  Country: None (occurrence: None)
  Receive Date: 20110408
  Receipt Date: 20110328
  Transmission Date: 20111010
  Serious: Yes (Other)
  Sender: FDA-Public Use
  Company Number: PHEH2008US09971

PATIENT
  Sex: Male

DRUGS (23)
  1. WARFARIN SODIUM [Concomitant]
     Indication: ATRIAL FIBRILLATION
  2. HYDROCODONE [Concomitant]
  3. ZOMETA [Suspect]
     Indication: MULTIPLE MYELOMA
     Dosage: 4 MG, Q 4 WEEKS X 6
     Route: 042
     Dates: start: 20020218
  4. ALTACE [Concomitant]
  5. AZITHROMYCIN [Concomitant]
  6. AMOXIL ^WYETH-AYERST^ [Concomitant]
  7. AUGMENTIN '125' [Concomitant]
  8. AREDIA [Suspect]
     Dosage: UNK
  9. PRILOSEC [Concomitant]
  10. DEXAMETHASONE [Concomitant]
  11. TYLENOL W/ CODEINE NO. 3 [Concomitant]
  12. VIAGRA [Concomitant]
     Dosage: 50 MG, UNK
  13. ZOCOR [Concomitant]
  14. AREDIA [Suspect]
     Indication: MULTIPLE MYELOMA
     Dosage: 90 MG, Q 4 WEEKS X 6
     Dates: start: 20010116, end: 20020218
  15. NORCO [Concomitant]
     Dosage: 7.5/325MG, Q 4 HRS PRN
  16. LIPITOR [Suspect]
     Indication: BLOOD CHOLESTEROL INCREASED
     Dosage: UNK
  17. COREG [Concomitant]
     Indication: HYPERTENSION
  18. SPIRONOLACTONE [Concomitant]
     Indication: HYPERTENSION
  19. AVELOX [Concomitant]
  20. AMOXICILLIN [Concomitant]
  21. METRONIDAZOLE [Concomitant]
  22. CHLORHEXIDINE GLUCONATE [Concomitant]
  23. PERIDEX [Concomitant]
     Dosage: UNK

REACTIONS (52)
  - DISEASE PROGRESSION [None]
  - LYMPHADENOPATHY [None]
  - PAIN IN JAW [None]
  - INTERVERTEBRAL DISC DEGENERATION [None]
  - SINUSITIS [None]
  - BASAL CELL CARCINOMA [None]
  - DRY SKIN [None]
  - EXOSTOSIS [None]
  - SECONDARY SEQUESTRUM [None]
  - BONE DISORDER [None]
  - RADICULITIS CERVICAL [None]
  - PAIN IN EXTREMITY [None]
  - RASH [None]
  - INJURY [None]
  - ANXIETY [None]
  - TOOTHACHE [None]
  - NEURITIS [None]
  - ARTHRALGIA [None]
  - FALL [None]
  - HEADACHE [None]
  - BRUXISM [None]
  - THROMBOCYTOPENIA [None]
  - MUSCLE TWITCHING [None]
  - PARAESTHESIA [None]
  - ORAL CAVITY FISTULA [None]
  - NECK PAIN [None]
  - INTERVERTEBRAL DISC SPACE NARROWING [None]
  - CONTRAST MEDIA REACTION [None]
  - CARPAL TUNNEL SYNDROME [None]
  - SYNOVITIS [None]
  - OSTEONECROSIS OF JAW [None]
  - ORAL DISORDER [None]
  - CERVICOBRACHIAL SYNDROME [None]
  - NEUROPATHY PERIPHERAL [None]
  - CONNECTIVE TISSUE INFLAMMATION [None]
  - OSTEOMYELITIS [None]
  - ANHEDONIA [None]
  - IMPAIRED HEALING [None]
  - SPINAL OSTEOARTHRITIS [None]
  - INTERVERTEBRAL DISC PROTRUSION [None]
  - MUSCLE SPASMS [None]
  - ROTATOR CUFF SYNDROME [None]
  - DISABILITY [None]
  - PAIN [None]
  - BONE LESION [None]
  - TOOTH ABSCESS [None]
  - CONTUSION [None]
  - HYPERLIPIDAEMIA [None]
  - MUSCULOSKELETAL PAIN [None]
  - MUSCULAR WEAKNESS [None]
  - ERECTILE DYSFUNCTION [None]
  - SQUAMOUS CELL CARCINOMA [None]
